FAERS Safety Report 25155207 (Version 2)
Quarter: 2025Q2

REPORT INFORMATION
  Report Type: Spontaneous
  Country: FR (occurrence: FR)
  Receive Date: 20250403
  Receipt Date: 20250408
  Transmission Date: 20250716
  Serious: No
  Sender: PFIZER
  Company Number: FR-ROCHE-10000239742

PATIENT
  Age: 42 Year
  Sex: Female

DRUGS (9)
  1. PIPERACILLIN SODIUM\TAZOBACTAM SODIUM [Suspect]
     Active Substance: PIPERACILLIN SODIUM\TAZOBACTAM SODIUM
     Indication: Superinfection bacterial
  2. PIPERACILLIN SODIUM\TAZOBACTAM SODIUM [Suspect]
     Active Substance: PIPERACILLIN SODIUM\TAZOBACTAM SODIUM
     Indication: Influenza
     Dosage: 16 G, DAILY (24 H FOR 7 DAYS)
  3. OSELTAMIVIR [Concomitant]
     Active Substance: OSELTAMIVIR
     Indication: Superinfection bacterial
     Dosage: 75 MG, 2X/DAY
  4. OSELTAMIVIR [Concomitant]
     Active Substance: OSELTAMIVIR
     Indication: Influenza
  5. ACETAMINOPHEN [Concomitant]
     Active Substance: ACETAMINOPHEN
  6. SPIRAMYCIN [Concomitant]
     Active Substance: SPIRAMYCIN
     Indication: Superinfection bacterial
     Dosage: 3 MILLION UNITS, 3X/DAY
  7. SPIRAMYCIN [Concomitant]
     Active Substance: SPIRAMYCIN
     Indication: Influenza
  8. AMIKACIN [Concomitant]
     Active Substance: AMIKACIN
     Indication: Superinfection bacterial
  9. AMIKACIN [Concomitant]
     Active Substance: AMIKACIN
     Indication: Influenza

REACTIONS (2)
  - Maternal exposure during pregnancy [Unknown]
  - Off label use [Unknown]
